FAERS Safety Report 5311504-1 (Version None)
Quarter: 2007Q2

REPORT INFORMATION
  Report Type: 
  Country: None (occurrence: None)
  Receive Date: 20070430
  Receipt Date: 20070425
  Transmission Date: 20071010
  Serious: Yes (Death)
  Sender: FDA-Public Use
  Company Number: US-GLAXOSMITHKLINE-A0648726A

PATIENT
  Sex: Male

DRUGS (2)
  1. COREG [Suspect]
     Route: 048
     Dates: start: 20070201
  2. RANEXA [Concomitant]

REACTIONS (1)
  - CARDIAC FAILURE [None]
